FAERS Safety Report 24184507 (Version 1)
Quarter: 2024Q3

REPORT INFORMATION
  Report Type: Spontaneous
  Country: US (occurrence: None)
  Receive Date: 20240807
  Receipt Date: 20240807
  Transmission Date: 20241017
  Serious: Yes (Hospitalization)
  Sender: Public
  Company Number: None

PATIENT
  Age: 45 Year
  Sex: Female
  Weight: 77.6 kg

DRUGS (1)
  1. PEMBROLIZUMAB [Suspect]
     Active Substance: PEMBROLIZUMAB
     Dates: end: 20240709

REACTIONS (11)
  - Nausea [None]
  - Vomiting [None]
  - Pyrexia [None]
  - Pneumonia [None]
  - Urinary tract infection [None]
  - Lung infiltration [None]
  - Rash pruritic [None]
  - Drug eruption [None]
  - Lymphocyte count decreased [None]
  - Pneumonia [None]
  - Cystitis [None]

NARRATIVE: CASE EVENT DATE: 20240726
